FAERS Safety Report 5313047-8 (Version None)
Quarter: 2007Q2

REPORT INFORMATION
  Report Type: 
  Country: None (occurrence: None)
  Receive Date: 20070430
  Receipt Date: 20070418
  Transmission Date: 20071010
  Serious: Yes (Other)
  Sender: FDA-Public Use
  Company Number: JP-PFIZER INC-2007024485

PATIENT
  Sex: Male
  Weight: 65 kg

DRUGS (5)
  1. ZITHROMAC [Suspect]
     Indication: INFLUENZA
     Route: 048
     Dates: start: 20070322, end: 20070322
  2. ZITHROMAC [Suspect]
     Indication: UPPER RESPIRATORY TRACT INFLAMMATION
  3. TOCLASE [Suspect]
     Indication: UPPER RESPIRATORY TRACT INFLAMMATION
     Route: 048
     Dates: start: 20070322, end: 20070322
  4. DASEN [Suspect]
     Indication: UPPER RESPIRATORY TRACT INFLAMMATION
     Route: 048
     Dates: start: 20070322, end: 20070322
  5. CALONAL [Concomitant]
     Route: 048

REACTIONS (1)
  - DIARRHOEA HAEMORRHAGIC [None]
